FAERS Safety Report 26167610 (Version 1)
Quarter: 2025Q4

REPORT INFORMATION
  Report Type: Spontaneous
  Country: JP (occurrence: JP)
  Receive Date: 20251217
  Receipt Date: 20251217
  Transmission Date: 20260118
  Serious: Yes (Other)
  Sender: BAXTER
  Company Number: JP-shionogi-202500013611

PATIENT
  Age: 3 Year
  Sex: Male

DRUGS (12)
  1. CYCLOPHOSPHAMIDE [Suspect]
     Active Substance: CYCLOPHOSPHAMIDE
     Indication: B-cell type acute leukaemia
     Dosage: 440 MG/M2, QD (FROM DAYS 1 TO 5 IN BLOCK 2)
     Route: 042
  2. DOXORUBICIN [Suspect]
     Active Substance: DOXORUBICIN
     Indication: B-cell type acute leukaemia
     Dosage: 60 MG/M2, QD (ON DAY 1 IN BLOCK 1)
     Route: 042
  3. BORTEZOMIB [Suspect]
     Active Substance: BORTEZOMIB
     Indication: B-cell type acute leukaemia
     Dosage: 1.3 MG/M2 ON DAYS 1, 4, 8 AND 11 IN BLOCK 1; ON DAYS 1, 4, AND 8 IN BLOCK 2
     Route: 042
  4. PREDNISONE [Suspect]
     Active Substance: PREDNISONE
     Indication: B-cell type acute leukaemia
     Dosage: 40 MG/M2/D FOR 28 CONSECUTIVE DAYS
     Route: 042
  5. VINCRISTINE SULFATE [Suspect]
     Active Substance: VINCRISTINE SULFATE
     Indication: B-cell type acute leukaemia
     Dosage: 1.5 MG/M2, QD (ON DAYS 1, 8, 15 AND 22 IN BLOCK 1)
     Route: 042
  6. ASPARAGINASE [Suspect]
     Active Substance: ASPARAGINASE
     Indication: B-cell type acute leukaemia
     Dosage: 10,000 U/M2 TWICE A WEEK FOR 8 DOSES IN BLOCK 1
     Route: 042
  7. METHOTREXATE [Suspect]
     Active Substance: METHOTREXATE
     Indication: B-cell type acute leukaemia
     Dosage: INTRATHECAL METHOTREXATE ON DAYS 1. 15 AND 29 IN BLOCK 1
     Route: 037
  8. METHOTREXATE [Suspect]
     Active Substance: METHOTREXATE
     Dosage: 500 MG/M2, REDUCED DOSE WAS GIVEN ON DAY 22 OF BLOCK 2
     Route: 042
  9. METHOTREXATE [Suspect]
     Active Substance: METHOTREXATE
     Dosage: INTRATHECAL METHOTREXATE ON DAYS 1 AND 22
     Route: 037
  10. ETOPOSIDE [Suspect]
     Active Substance: ETOPOSIDE
     Indication: B-cell type acute leukaemia
     Dosage: 100 MG/M2, QD (FROM DAYS 1 TO 5 IN BLOCK 2)
     Route: 042
  11. CYTARABINE [Concomitant]
     Active Substance: CYTARABINE
     Indication: B-cell type acute leukaemia
     Dosage: 20 MG/M2 DAILY FOR 5 DAYS
     Route: 065
  12. BLINATUMOMAB [Concomitant]
     Active Substance: BLINATUMOMAB
     Indication: B-cell type acute leukaemia
     Dosage: SINGLE AGENT BLINATUMOMAB WAS ADMINISTERED FOR 4 WEEKS
     Route: 065

REACTIONS (2)
  - Haematotoxicity [Unknown]
  - Infection [Unknown]
